FAERS Safety Report 17261626 (Version 1)
Quarter: 2020Q1

REPORT INFORMATION
  Report Type: Spontaneous
  Country: NL (occurrence: NL)
  Receive Date: 20200113
  Receipt Date: 20200113
  Transmission Date: 20200409
  Serious: Yes (Other)
  Sender: FDA-Public Use
  Company Number: NL-TEVA-2020-NL-1167073

PATIENT
  Age: 65 Year
  Sex: Female
  Weight: 56 kg

DRUGS (8)
  1. METOPROL SUC MYL 50 [Concomitant]
     Dosage: 1DD; 50MG PER DAY
  2. IBUPROFEN BRUIS [Concomitant]
     Dosage: 1 DOSAGE FORM PER DAY
  3. PRAVASTATINE [Suspect]
     Active Substance: PRAVASTATIN
     Indication: HYPERCHOLESTEROLAEMIA
     Dosage: 1 DOSAGE FORM PER DAY
     Dates: start: 20191128, end: 20191129
  4. SYMBICORT [Concomitant]
     Active Substance: BUDESONIDE\FORMOTEROL FUMARATE DIHYDRATE
     Dosage: 1 DOSAGE FORM PER DAY
  5. GABAPENTINE 800 [Concomitant]
     Dosage: 2DD; 800MG EVERY 12 HOURS
  6. PARACETAMOL 1000 MG [Concomitant]
     Dosage: 2DD; 1000 MG EVERY 12 HOURS
  7. OXACEPAM 10 MG [Concomitant]
     Dosage: 1DD; 10MG PER DAY
  8. METOPROL SUC MYL 100 [Concomitant]
     Dosage: 100 MG PER DAY

REACTIONS (7)
  - Stomatitis [Recovering/Resolving]
  - Vomiting [Recovering/Resolving]
  - Hallucination, visual [Recovering/Resolving]
  - Nausea [Recovering/Resolving]
  - Diarrhoea [Recovering/Resolving]
  - Dizziness [Recovering/Resolving]
  - Vision blurred [Recovering/Resolving]

NARRATIVE: CASE EVENT DATE: 20191128
